FAERS Safety Report 5887081-3 (Version None)
Quarter: 2008Q3

REPORT INFORMATION
  Report Type: 
  Country: None (occurrence: None)
  Receive Date: 20080915
  Receipt Date: 20080904
  Transmission Date: 20090109
  Serious: Yes (Hospitalization)
  Sender: FDA-Public Use
  Company Number: GXKR2008JP08466

PATIENT
  Age: 77 Year
  Sex: Male

DRUGS (3)
  1. FLUOROURACIL [Suspect]
     Indication: COLON CANCER RECURRENT
     Dosage: 350 MG/M2, BOLUS, UNKNOWN; 2300 MG/INFUSER PUMP/M2, INFUSION
  2. FOLINIC ACID (NGX) (FOLINIC ACID) UNKNOWN [Suspect]
     Indication: COLON CANCER RECURRENT
     Dosage: 200 MG/M2
  3. IRINOTECAN HCL [Suspect]
     Indication: COLON CANCER RECURRENT
     Dosage: 130 MG/M2

REACTIONS (5)
  - ANAEMIA [None]
  - CYTOMEGALOVIRUS COLITIS [None]
  - DIARRHOEA [None]
  - LARGE INTESTINAL ULCER [None]
  - VOMITING [None]
